FAERS Safety Report 17893902 (Version 1)
Quarter: 2020Q2

REPORT INFORMATION
  Report Type: Spontaneous
  Country: FR (occurrence: FR)
  Receive Date: 20200615
  Receipt Date: 20200615
  Transmission Date: 20200714
  Serious: Yes (Other)
  Sender: FDA-Public Use
  Company Number: FR-BAUSCH-BL-2020-016761

PATIENT
  Age: 56 Year
  Sex: Female

DRUGS (20)
  1. ERYTHROMYCINE PANPHARMA [Suspect]
     Active Substance: ERYTHROMYCIN LACTOBIONATE
     Indication: INFECTION
     Dosage: 250 MG QD
     Route: 048
     Dates: start: 20200423, end: 20200423
  2. RIFAXIMIN. [Suspect]
     Active Substance: RIFAXIMIN
     Indication: ANTIBIOTIC PROPHYLAXIS
     Dosage: 1100 MG DAILY (1-0-1)
     Route: 048
     Dates: start: 20200425, end: 20200506
  3. TRAMADOL. [Suspect]
     Active Substance: TRAMADOL
     Route: 042
     Dates: start: 20200504, end: 20200507
  4. VANCOMYCINE MYLAN [Suspect]
     Active Substance: VANCOMYCIN
     Indication: INFECTION
     Dosage: 4 G, QD
     Route: 042
     Dates: start: 20200428, end: 20200430
  5. CARVEDILOL ARROW [Concomitant]
     Active Substance: CARVEDILOL
     Indication: HYPERTENSION
     Dosage: 12.5 MG, DAILY (1-0-1)
     Route: 048
     Dates: start: 2018
  6. ROCEPHINE [Suspect]
     Active Substance: CEFTRIAXONE SODIUM
     Indication: INFECTION
     Dosage: 1 G, QD
     Route: 042
     Dates: start: 20200423, end: 20200427
  7. INCRUSE ELLIPTA [Concomitant]
     Active Substance: UMECLIDINIUM BROMIDE
     Indication: CHRONIC OBSTRUCTIVE PULMONARY DISEASE
     Dosage: POWDER FOR INHALATION IN SINGLE-DOSE CONTAINER, 55 MCG
     Route: 055
     Dates: start: 201912
  8. VANCOMYCINE MYLAN [Suspect]
     Active Substance: VANCOMYCIN
     Dosage: 2 G, QD
     Route: 042
     Dates: start: 20200430, end: 20200504
  9. RELVAR ELLIPTA [Concomitant]
     Active Substance: FLUTICASONE FUROATE\VILANTEROL TRIFENATATE
     Indication: CHRONIC OBSTRUCTIVE PULMONARY DISEASE
     Dosage: 1 DF, QD (1-0-0)
     Route: 055
     Dates: start: 201912
  10. TRAMADOL. [Suspect]
     Active Substance: TRAMADOL
     Route: 042
     Dates: start: 20200503, end: 20200503
  11. QUETIAPINE. [Concomitant]
     Active Substance: QUETIAPINE
     Indication: DEPRESSION
     Dosage: 150 MG, QD
     Route: 048
     Dates: start: 2018
  12. SERESTA [Concomitant]
     Active Substance: OXAZEPAM
     Indication: ANXIETY
     Dosage: 10 MG QD
     Route: 048
     Dates: start: 2018
  13. LOVENOX [Suspect]
     Active Substance: ENOXAPARIN SODIUM
     Indication: THROMBOSIS PROPHYLAXIS
     Dosage: 6000 IU, QD
     Route: 058
     Dates: start: 20200428, end: 2020
  14. TRAMADOL. [Suspect]
     Active Substance: TRAMADOL
     Indication: PAIN
     Route: 042
     Dates: start: 20200424, end: 20200425
  15. LANTUS [Concomitant]
     Active Substance: INSULIN GLARGINE
     Indication: TYPE 2 DIABETES MELLITUS
     Dosage: 12 IU, QD (THE EVENING)
     Route: 058
     Dates: start: 201805
  16. TERCIAN [Concomitant]
     Active Substance: CYAMEMAZINE
     Indication: DEPRESSION
     Dosage: 25 MG, QD (0-0-1)
     Route: 048
     Dates: start: 2018
  17. PAROXETINE. [Concomitant]
     Active Substance: PAROXETINE
     Indication: DEPRESSION
     Dosage: 20 MG, QD (1-0-0)
     Route: 048
     Dates: start: 2018
  18. TRAMADOL. [Suspect]
     Active Substance: TRAMADOL
     Route: 042
     Dates: start: 20200502, end: 20200502
  19. GABAPENTINE ARROW GENERIQUES [Concomitant]
     Indication: NEURALGIA
     Dosage: GENERIC,?1-1-1
     Route: 048
     Dates: start: 2018
  20. NOVORAPID [Concomitant]
     Active Substance: INSULIN ASPART
     Indication: TYPE 2 DIABETES MELLITUS
     Dosage: PRN
     Route: 058
     Dates: start: 201805

REACTIONS (2)
  - Dermo-hypodermitis [Recovered/Resolved]
  - Rash maculo-papular [Recovered/Resolved]

NARRATIVE: CASE EVENT DATE: 20200502
